FAERS Safety Report 9850878 (Version 1)
Quarter: 2014Q1

REPORT INFORMATION
  Report Type: Spontaneous
  Country: US (occurrence: US)
  Receive Date: 20140128
  Receipt Date: 20140128
  Transmission Date: 20141002
  Serious: Yes (Death, Other)
  Sender: FDA-Public Use
  Company Number: US-PFIZER INC-2014025599

PATIENT
  Age: 5 Year
  Sex: 0

DRUGS (1)
  1. CORTEF [Suspect]
     Indication: CONGENITAL ADRENAL GLAND HYPOPLASIA
     Dosage: 5 MG, UNK

REACTIONS (3)
  - Hypoglycaemic seizure [Fatal]
  - Vomiting [Unknown]
  - Gastroenteritis [Unknown]
